FAERS Safety Report 9746479 (Version 2)
Quarter: 2013Q4

REPORT INFORMATION
  Report Type: Spontaneous
  Country: US (occurrence: US)
  Receive Date: 20131211
  Receipt Date: 20131211
  Transmission Date: 20140711
  Serious: No
  Sender: FDA-Public Use
  Company Number: US-BANPHARM-20131733

PATIENT
  Age: 14 Year
  Sex: Female
  Weight: 54.43 kg

DRUGS (4)
  1. MIDOL [Suspect]
     Indication: DYSMENORRHOEA
     Route: 048
  2. IBUPROFEN 600 MG [Concomitant]
     Indication: PAIN
  3. SERTRALINE [Concomitant]
  4. THYROID MEDICATION [Concomitant]

REACTIONS (3)
  - Euphoric mood [Unknown]
  - Fatigue [Not Recovered/Not Resolved]
  - Incorrect dose administered [Unknown]
